FAERS Safety Report 25870354 (Version 1)
Quarter: 2025Q4

REPORT INFORMATION
  Report Type: Spontaneous
  Country: US (occurrence: US)
  Receive Date: 20251001
  Receipt Date: 20251001
  Transmission Date: 20260117
  Serious: Yes (Death, Other)
  Sender: PURDUE
  Company Number: US-NAPPMUNDI-GBR-2025-0129226

PATIENT
  Age: 75 Year
  Sex: Female

DRUGS (5)
  1. HYDROMORPHONE HYDROCHLORIDE [Suspect]
     Active Substance: HYDROMORPHONE HYDROCHLORIDE
     Indication: Spinal pain
     Dosage: 12 MG EVERY 3 HOURS AS NEEDED (PRN)
     Route: 065
  2. HYDROMORPHONE HYDROCHLORIDE [Suspect]
     Active Substance: HYDROMORPHONE HYDROCHLORIDE
     Dosage: RESUMED AT ABOUT ONCE DAILY
     Route: 065
  3. METHADONE [Suspect]
     Active Substance: METHADONE HYDROCHLORIDE
     Indication: Spinal pain
     Dosage: 10 MG THREE TIMES DAILY
     Route: 065
  4. METHADONE [Suspect]
     Active Substance: METHADONE HYDROCHLORIDE
     Dosage: 15 MG IN THE MORNING AND 10 MG AT NIGHT
     Route: 065
  5. KETAMINE [Suspect]
     Active Substance: KETAMINE
     Indication: Spinal pain
     Dosage: 10 MG ONCE DAILY
     Route: 048

REACTIONS (7)
  - Non-small cell lung cancer [Fatal]
  - Dizziness [Unknown]
  - Fatigue [Not Recovered/Not Resolved]
  - Somnolence [Recovering/Resolving]
  - Memory impairment [Unknown]
  - Inadequate analgesia [Unknown]
  - Inappropriate schedule of product administration [Unknown]
